FAERS Safety Report 6561837-6 (Version None)
Quarter: 2010Q1

REPORT INFORMATION
  Report Type: 
  Country: None (occurrence: None)
  Receive Date: 20100130
  Receipt Date: 20091029
  Transmission Date: 20100710
  Serious: No
  Sender: FDA-Public Use
  Company Number: US-ABBOTT-09P-163-0606576-00

PATIENT
  Sex: Female
  Weight: 78.996 kg

DRUGS (10)
  1. HUMIRA [Suspect]
     Indication: PSORIASIS
     Route: 058
  2. HUMIRA [Suspect]
     Indication: PSORIATIC ARTHROPATHY
  3. METHOTREXATE [Concomitant]
     Indication: DRUG USE FOR UNKNOWN INDICATION
  4. NEURONTIN [Concomitant]
     Indication: DRUG USE FOR UNKNOWN INDICATION
  5. CYMBALTA [Concomitant]
     Indication: DRUG USE FOR UNKNOWN INDICATION
  6. BACLOFEN [Concomitant]
     Indication: DRUG USE FOR UNKNOWN INDICATION
  7. KLONOPIN [Concomitant]
     Indication: DRUG USE FOR UNKNOWN INDICATION
  8. OXYCONTIN [Concomitant]
     Indication: ARTHRALGIA
  9. OXYCONTIN [Concomitant]
     Indication: PAIN
  10. OXYCONTIN [Concomitant]
     Indication: FIBROMYALGIA

REACTIONS (3)
  - COUGH [None]
  - PULMONARY OEDEMA [None]
  - SINUSITIS [None]
